FAERS Safety Report 8488032-8 (Version None)
Quarter: 2012Q3

REPORT INFORMATION
  Report Type: 
  Country: None (occurrence: None)
  Receive Date: 20120705
  Receipt Date: 20120627
  Transmission Date: 20120928
  Serious: Yes (Death)
  Sender: FDA-Public Use
  Company Number: US-CELGENEUS-163-21880-12040876

PATIENT
  Sex: Female
  Weight: 64.014 kg

DRUGS (12)
  1. REVLIMID [Suspect]
     Dosage: 20 MILLIGRAM
     Route: 048
     Dates: start: 20100801
  2. REVLIMID [Suspect]
     Dosage: 10 MILLIGRAM
     Route: 048
     Dates: start: 20111001
  3. BACLOFEN [Concomitant]
     Dosage: 10 MILLIGRAM
     Route: 048
  4. REVLIMID [Suspect]
     Indication: MULTIPLE MYELOMA
     Dosage: 25 MILLIGRAM
     Route: 048
     Dates: start: 20100511, end: 20120326
  5. WARFARIN SODIUM [Concomitant]
     Dosage: 1 MILLIGRAM
     Route: 048
  6. ALPRAZOLAM [Concomitant]
     Route: 048
  7. TRAZODONE HCL [Concomitant]
     Dosage: 50 MILLIGRAM
     Route: 048
  8. TUMS ULTRA [Concomitant]
     Dosage: 1000 MILLIGRAM
     Route: 048
  9. DEXAMETHASONE SODIUM PHOSPHATE [Concomitant]
     Dosage: 4 MILLIGRAM
     Route: 048
  10. SERTRALINE HYDROCHLORIDE [Concomitant]
     Dosage: 100 MILLIGRAM
     Route: 048
  11. VITAMIN D [Concomitant]
     Dosage: 1000 UNIT
     Route: 048
  12. REVLIMID [Suspect]
     Dosage: 15 MILLIGRAM
     Route: 048
     Dates: start: 20120501

REACTIONS (2)
  - DEATH [None]
  - DRUG INEFFECTIVE [None]
